FAERS Safety Report 16192448 (Version 1)
Quarter: 2019Q2

REPORT INFORMATION
  Report Type: Spontaneous
  Country: US (occurrence: US)
  Receive Date: 20190412
  Receipt Date: 20190412
  Transmission Date: 20190711
  Serious: Yes (Life-Threatening, Hospitalization, Disabling, Other)
  Sender: FDA-Public Use
  Company Number: US-C B FLEET CO INC-201904-US-000900

PATIENT
  Sex: Male

DRUGS (1)
  1. GOODYS EXTRA STRENGTH [Suspect]
     Active Substance: ACETAMINOPHEN\ASPIRIN\CAFFEINE
     Indication: PAIN
     Dosage: TAKES 6 DAILY, SINCE 2009
     Route: 048
     Dates: start: 2009

REACTIONS (9)
  - Large intestinal ulcer [Recovered/Resolved]
  - Colectomy [Recovered/Resolved]
  - Incorrect product administration duration [None]
  - Drug dependence [Not Recovered/Not Resolved]
  - Overdose [None]
  - Inappropriate schedule of product administration [None]
  - Gastric ulcer [Not Recovered/Not Resolved]
  - Oesophageal ulcer [Not Recovered/Not Resolved]
  - Blood potassium decreased [Not Recovered/Not Resolved]
